FAERS Safety Report 24208473 (Version 1)
Quarter: 2024Q3

REPORT INFORMATION
  Report Type: Spontaneous
  Country: GB (occurrence: GB)
  Receive Date: 20240814
  Receipt Date: 20240814
  Transmission Date: 20241017
  Serious: Yes (Other)
  Sender: AUROBINDO
  Company Number: GB-MHRA-TPP13250855C22675043YC1722430016131

PATIENT
  Age: 58 Year
  Sex: Female
  Weight: 82 kg

DRUGS (7)
  1. BISOPROLOL FUMARATE [Suspect]
     Active Substance: BISOPROLOL FUMARATE
     Indication: Ill-defined disorder
     Dosage: 2.5 MILLIGRAM (2.5MG TABLETS)
     Route: 065
  2. MONTELUKAST [Concomitant]
     Active Substance: MONTELUKAST SODIUM
     Indication: Ill-defined disorder
     Dosage: UNK (TAKE ONE AT NIGHT, TO HELP CONTROL ASTHMA/COPD....)
     Route: 065
     Dates: start: 20220811
  3. ESTRADIOL\NORETHINDRONE ACETATE [Concomitant]
     Active Substance: ESTRADIOL\NORETHINDRONE ACETATE
     Indication: Ill-defined disorder
     Dosage: UNK (TAKE ONE DAILY)
     Route: 065
     Dates: start: 20221205
  4. FEXOFENADINE [Concomitant]
     Active Substance: FEXOFENADINE HYDROCHLORIDE
     Indication: Ill-defined disorder
     Dosage: UNK (TAKE ONE TABLET DAILY FOR ALLERGY SYMPTOMS. DO ...)
     Route: 065
     Dates: start: 20231013
  5. BECLOMETHASONE\FORMOTEROL [Concomitant]
     Active Substance: BECLOMETHASONE\FORMOTEROL
     Indication: Ill-defined disorder
     Dosage: UNK (INHALE TWO DOSES TWICE A DAY AND UP TO 4 ADDITI...)
     Route: 065
     Dates: start: 20240309
  6. METOCLOPRAMIDE [Concomitant]
     Active Substance: METOCLOPRAMIDE
     Indication: Ill-defined disorder
     Dosage: UNK (TAKE ONE TABLET THREE TIMES A DAY WHEN REQUIRED...)
     Route: 065
     Dates: start: 20240310
  7. RAMIPRIL [Concomitant]
     Active Substance: RAMIPRIL
     Indication: Ill-defined disorder
     Dosage: UNK (TAKE ONE CAPSULE EACH MORNING TO HELP BLOOD PRE...)
     Route: 065
     Dates: start: 20240711

REACTIONS (1)
  - Drug intolerance [Recovered/Resolved]
